FAERS Safety Report 13109987 (Version 1)
Quarter: 2017Q1

REPORT INFORMATION
  Report Type: Spontaneous
  Country: US (occurrence: US)
  Receive Date: 20170112
  Receipt Date: 20170112
  Transmission Date: 20170428
  Serious: No
  Sender: FDA-Public Use
  Company Number: US-ROCHE-1192544

PATIENT
  Age: 2 Month
  Sex: Male
  Weight: 3.6 kg

DRUGS (9)
  1. ALTEPLASE [Suspect]
     Active Substance: ALTEPLASE
     Indication: ISCHAEMIA
     Dosage: CONTINUOUS INFUSION FOR 24 HOURS
     Route: 065
  2. HEPARIN [Concomitant]
     Active Substance: HEPARIN SODIUM
     Indication: ARTERIAL CATHETERISATION
  3. FRESH FROZEN PLASMA [Concomitant]
     Active Substance: HUMAN PLASMA
     Indication: PLASMINOGEN
     Dosage: 10 ML/KG
     Route: 065
  4. ALTEPLASE [Suspect]
     Active Substance: ALTEPLASE
     Indication: ARTERIAL CATHETERISATION
     Dosage: CONTINUOUS INFUSION
     Route: 065
  5. NITROGLYCERIN. [Concomitant]
     Active Substance: NITROGLYCERIN
     Indication: ISCHAEMIA
     Dosage: 2% OINTMENT AT A DOSE OF 4 MM/KG
     Route: 061
  6. HEPARIN [Concomitant]
     Active Substance: HEPARIN SODIUM
     Indication: ISCHAEMIA
     Dosage: 10 U/KG/H STARTING DOSE
     Route: 065
  7. NITROGLYCERIN. [Concomitant]
     Active Substance: NITROGLYCERIN
     Indication: ARTERIAL CATHETERISATION
  8. ALTEPLASE [Suspect]
     Active Substance: ALTEPLASE
     Indication: PERIPHERAL ARTERY THROMBOSIS
     Dosage: LOADING DOSE FOR 1 HOUR
     Route: 065
  9. FENTANYL. [Concomitant]
     Active Substance: FENTANYL
     Indication: ISCHAEMIC LIMB PAIN
     Route: 041

REACTIONS (1)
  - Vessel puncture site haemorrhage [Unknown]
